FAERS Safety Report 4677121-1 (Version None)
Quarter: 2005Q2

REPORT INFORMATION
  Report Type: 
  Country: None (occurrence: None)
  Receive Date: 20050525
  Receipt Date: 20050525
  Transmission Date: 20051028
  Serious: No
  Sender: FDA-Public Use
  Company Number: None

PATIENT
  Age: 45 Year
  Sex: Male

DRUGS (1)
  1. WARFARIN     4MG    DUPONT [Suspect]
     Indication: ARRHYTHMIA
     Dosage: PO   DAILY
     Route: 048
     Dates: start: 20050501, end: 20050516

REACTIONS (2)
  - ALOPECIA [None]
  - RASH GENERALISED [None]
